FAERS Safety Report 7496373-6 (Version None)
Quarter: 2011Q2

REPORT INFORMATION
  Report Type: 
  Country: None (occurrence: None)
  Receive Date: 20110520
  Receipt Date: 20110520
  Transmission Date: 20111010
  Serious: Yes (Hospitalization)
  Sender: FDA-Public Use
  Company Number: None

PATIENT
  Sex: Female
  Weight: 93.0781 kg

DRUGS (1)
  1. PLAVIX [Suspect]
     Indication: CEREBROVASCULAR ACCIDENT PROPHYLAXIS
     Dosage: 75MG DAILY PO
     Route: 048
     Dates: start: 20110321, end: 20110519

REACTIONS (3)
  - GASTROINTESTINAL HAEMORRHAGE [None]
  - WHEEZING [None]
  - DIZZINESS [None]
